FAERS Safety Report 6986391-6 (Version None)
Quarter: 2010Q3

REPORT INFORMATION
  Report Type: 
  Country: None (occurrence: None)
  Receive Date: 20100915
  Receipt Date: 20090702
  Transmission Date: 20110219
  Serious: No
  Sender: FDA-Public Use
  Company Number: US-WYE-H10042609

PATIENT
  Sex: Female
  Weight: 63.56 kg

DRUGS (6)
  1. PRISTIQ [Suspect]
     Indication: ANXIETY
     Route: 048
     Dates: start: 20090701
  2. PRISTIQ [Suspect]
     Indication: DEPRESSION
  3. ACETAMINOPHEN WITH PROPOXYPHENE HCL TAB [Concomitant]
  4. ATIVAN [Concomitant]
  5. ZOCOR [Concomitant]
  6. NEXIUM [Concomitant]

REACTIONS (1)
  - HYPERHIDROSIS [None]
